FAERS Safety Report 6483218-6 (Version None)
Quarter: 2009Q4

REPORT INFORMATION
  Report Type: 
  Country: None (occurrence: None)
  Receive Date: 20091208
  Receipt Date: 20091208
  Transmission Date: 20100525
  Serious: Yes (Other)
  Sender: FDA-Public Use
  Company Number: None

PATIENT
  Sex: Female
  Weight: 84.5 kg

DRUGS (1)
  1. BUDEPRION XL  150 MG 2 X DAY ORAL [Suspect]
     Indication: DEPRESSION
     Dosage: 150 MG 2 X DAY ORAL, 14-18 DAYS
     Route: 048

REACTIONS (3)
  - CONDITION AGGRAVATED [None]
  - DEPRESSION [None]
  - PRODUCT SUBSTITUTION ISSUE [None]
